FAERS Safety Report 9650512 (Version 1)
Quarter: 2013Q4

REPORT INFORMATION
  Report Type: Spontaneous
  Country: US (occurrence: US)
  Receive Date: 20131029
  Receipt Date: 20131029
  Transmission Date: 20140711
  Serious: No
  Sender: FDA-Public Use
  Company Number: US-009507513-1310USA009505

PATIENT
  Age: 75 Year
  Sex: Female

DRUGS (1)
  1. NASONEX [Suspect]
     Dosage: PRESCRIBED 50 MCG./ AT A FREQUENCY OF TWO SPRAYS IN EACH NOSTRIL, ONCE DAILY FOR THIRTY DAYS
     Route: 045
     Dates: start: 20131017

REACTIONS (2)
  - Product quality issue [Unknown]
  - Wrong technique in drug usage process [Unknown]
